FAERS Safety Report 5114807-9 (Version None)
Quarter: 2006Q3

REPORT INFORMATION
  Report Type: 
  Country: None (occurrence: None)
  Receive Date: 20060922
  Receipt Date: 20060922
  Transmission Date: 20061208
  Serious: Yes (Other)
  Sender: FDA-Public Use
  Company Number: None

PATIENT
  Age: 63 Year
  Sex: Male
  Weight: 99.7913 kg

DRUGS (1)
  1. CLARITIN-D [Suspect]
     Indication: SINUS HEADACHE
     Dosage: 1 TABLET  1 EVERY 24HRS   PO
     Route: 048
     Dates: start: 20060920, end: 20060921

REACTIONS (2)
  - DYSURIA [None]
  - PROSTATIC DISORDER [None]
